FAERS Safety Report 5380022-7 (Version None)
Quarter: 2007Q3

REPORT INFORMATION
  Report Type: 
  Country: None (occurrence: None)
  Receive Date: 20070703
  Receipt Date: 20070618
  Transmission Date: 20080115
  Serious: Yes (Hospitalization)
  Sender: FDA-Public Use
  Company Number: 2007000468

PATIENT
  Age: 54 Year
  Sex: Female

DRUGS (11)
  1. ERLOTINIB (TABLET) (ERLOTINIB HCL) [Suspect]
     Indication: PANCREATIC CARCINOMA METASTATIC
     Dosage: 100 MG (QD), ORAL
     Route: 048
     Dates: start: 20060906, end: 20070304
  2. BEVACIZUMAB [Suspect]
     Indication: PANCREATIC CARCINOMA METASTATIC
     Dosage: (1 X PER 2 WEEK), INTRAVENOUS
     Route: 042
     Dates: start: 20060906, end: 20061102
  3. GEMCITABINE [Suspect]
     Indication: PANCREATIC CARCINOMA METASTATIC
     Dosage: 1640 MG (1 X PER 1 WEEK), INTRAVENOUS
     Route: 042
     Dates: start: 20060906
  4. GLYBURIDE [Concomitant]
  5. METFORMIN (METFORMIN) [Concomitant]
  6. ALPRAZOLAM [Concomitant]
  7. ACETAMINOPHEN [Concomitant]
  8. OMEPRAZOLE [Concomitant]
  9. TRAMADOL HCL [Concomitant]
  10. WARFARIN SODIUM [Concomitant]
  11. MORPHINE [Concomitant]

REACTIONS (9)
  - ACTIVATED PARTIAL THROMBOPLASTIN TIME PROLONGED [None]
  - ASPARTATE AMINOTRANSFERASE INCREASED [None]
  - BLOOD GLUCOSE INCREASED [None]
  - DEHYDRATION [None]
  - DIARRHOEA [None]
  - NAUSEA [None]
  - PROTHROMBIN TIME PROLONGED [None]
  - PYREXIA [None]
  - VOMITING [None]
